FAERS Safety Report 9856853 (Version 1)
Quarter: 2014Q1

REPORT INFORMATION
  Report Type: Spontaneous
  Country: US (occurrence: None)
  Receive Date: 20140128
  Receipt Date: 20140128
  Transmission Date: 20141002
  Serious: No
  Sender: FDA-Public Use
  Company Number: CC13-1286

PATIENT
  Sex: 0

DRUGS (1)
  1. MOMETASONE FUROATE [Suspect]

REACTIONS (1)
  - Burning sensation [None]
